FAERS Safety Report 10297344 (Version 8)
Quarter: 2014Q4

REPORT INFORMATION
  Report Type: Spontaneous
  Country: US (occurrence: US)
  Receive Date: 20140711
  Receipt Date: 20141212
  Transmission Date: 20150528
  Serious: No
  Sender: FDA-Public Use
  Company Number: US-009507513-1407USA003569

PATIENT
  Sex: Female

DRUGS (2)
  1. DEPO-PROVERA [Concomitant]
     Active Substance: MEDROXYPROGESTERONE ACETATE
  2. IMPLANON [Suspect]
     Active Substance: ETONOGESTREL
     Indication: CONTRACEPTION
     Dosage: UNK, STRENGTH 68 MG
     Route: 059
     Dates: start: 201104

REACTIONS (3)
  - Medical device complication [Not Recovered/Not Resolved]
  - Incorrect drug administration duration [Unknown]
  - Frustration [Unknown]

NARRATIVE: CASE EVENT DATE: 2011
